FAERS Safety Report 12797520 (Version 1)
Quarter: 2016Q3

REPORT INFORMATION
  Report Type: Spontaneous
  Country: CN (occurrence: CN)
  Receive Date: 20160930
  Receipt Date: 20160930
  Transmission Date: 20161109
  Serious: Yes (Other)
  Sender: FDA-Public Use
  Company Number: CN-BAXTER-2016BAX048909

PATIENT
  Age: 65 Year
  Sex: Male
  Weight: 142 kg

DRUGS (12)
  1. 20% MANNITOL INJECTION [Suspect]
     Active Substance: MANNITOL
     Indication: DIZZINESS
     Route: 041
     Dates: start: 20160128, end: 20160128
  2. VITAMIN C [Suspect]
     Active Substance: ASCORBIC ACID
     Indication: VERTIGO
  3. 20% MANNITOL INJECTION [Suspect]
     Active Substance: MANNITOL
     Indication: VERTIGO
     Dosage: DOSE REDUCED (AT A SLOWER RATE)
     Route: 041
     Dates: start: 20160128, end: 20160128
  4. 5% GLUCOSE  INJECTION [Suspect]
     Active Substance: DEXTROSE
     Indication: DIZZINESS
     Route: 041
  5. VITAMIN C [Suspect]
     Active Substance: ASCORBIC ACID
     Indication: DIZZINESS
     Route: 041
  6. RIBAVIRIN. [Suspect]
     Active Substance: RIBAVIRIN
     Indication: UPPER RESPIRATORY TRACT INFECTION
  7. VITAMIN C [Suspect]
     Active Substance: ASCORBIC ACID
     Indication: UPPER RESPIRATORY TRACT INFECTION
  8. 20% MANNITOL INJECTION [Suspect]
     Active Substance: MANNITOL
     Indication: UPPER RESPIRATORY TRACT INFECTION
  9. RIBAVIRIN. [Suspect]
     Active Substance: RIBAVIRIN
     Indication: VERTIGO
     Route: 041
  10. 5% GLUCOSE  INJECTION [Suspect]
     Active Substance: DEXTROSE
     Indication: VERTIGO
  11. 5% GLUCOSE  INJECTION [Suspect]
     Active Substance: DEXTROSE
     Indication: UPPER RESPIRATORY TRACT INFECTION
  12. RIBAVIRIN. [Suspect]
     Active Substance: RIBAVIRIN
     Indication: DIZZINESS

REACTIONS (4)
  - Product odour abnormal [Unknown]
  - Feeling cold [Unknown]
  - Chills [Recovering/Resolving]
  - Poor quality drug administered [Unknown]

NARRATIVE: CASE EVENT DATE: 20160128
